FAERS Safety Report 10100519 (Version 1)
Quarter: 2014Q2

REPORT INFORMATION
  Report Type: Spontaneous
  Country: US (occurrence: US)
  Receive Date: 20140423
  Receipt Date: 20140423
  Transmission Date: 20141212
  Serious: No
  Sender: FDA-Public Use
  Company Number: US-GILEAD-2014-0100313

PATIENT
  Sex: Male

DRUGS (4)
  1. LETAIRIS [Suspect]
     Indication: PRODUCT USED FOR UNKNOWN INDICATION
     Dosage: 5 MG, QD
     Route: 065
     Dates: start: 201310
  2. REMODULIN [Concomitant]
  3. ADCIRCA [Concomitant]
  4. FUROSEMIDE [Concomitant]
     Dosage: 40 MG, UNK

REACTIONS (1)
  - Peripheral swelling [Unknown]
